FAERS Safety Report 8167175-2 (Version None)
Quarter: 2012Q1

REPORT INFORMATION
  Report Type: 
  Country: None (occurrence: None)
  Receive Date: 20120227
  Receipt Date: 20120213
  Transmission Date: 20120608
  Serious: Yes (Hospitalization)
  Sender: FDA-Public Use
  Company Number: FR-ELI_LILLY_AND_COMPANY-FR201202003728

PATIENT
  Sex: Male

DRUGS (4)
  1. SUBUTEX [Concomitant]
     Dosage: UNK
  2. ZYPREXA [Suspect]
     Dosage: 10 MG, QD
     Route: 048
     Dates: start: 20000101, end: 20120114
  3. ATARAX [Concomitant]
     Dosage: UNK
     Dates: start: 20111201
  4. LEXOMIL [Concomitant]
     Dosage: UNK

REACTIONS (3)
  - HOSPITALISATION [None]
  - TOOTH ABSCESS [None]
  - DIABETES MELLITUS [None]
